FAERS Safety Report 18057663 (Version 1)
Quarter: 2020Q3

REPORT INFORMATION
  Report Type: Spontaneous
  Country: RU (occurrence: RU)
  Receive Date: 20200723
  Receipt Date: 20200723
  Transmission Date: 20201103
  Serious: Yes (Other)
  Sender: FDA-Public Use
  Company Number: RU-AMGEN-RUSSP2020117874

PATIENT
  Age: 30 Year
  Sex: Male
  Weight: 85 kg

DRUGS (2)
  1. CORAXAN (IVABRADINE HYDROCHLORIDE) [Suspect]
     Active Substance: IVABRADINE HYDROCHLORIDE
     Indication: ATRIAL TACHYCARDIA
     Dosage: 5 MG, BID
     Route: 048
     Dates: start: 20190415, end: 20190515
  2. CORAXAN (IVABRADINE HYDROCHLORIDE) [Suspect]
     Active Substance: IVABRADINE HYDROCHLORIDE
     Dosage: UNK UNK, UNK
     Route: 065

REACTIONS (1)
  - Atrial tachycardia [Not Recovered/Not Resolved]

NARRATIVE: CASE EVENT DATE: 20190430
